FAERS Safety Report 6336905-4 (Version None)
Quarter: 2009Q3

REPORT INFORMATION
  Report Type: 
  Country: None (occurrence: None)
  Receive Date: 20090901
  Receipt Date: 20090824
  Transmission Date: 20100115
  Serious: Yes (Other)
  Sender: FDA-Public Use
  Company Number: PHHY2009CA36375

PATIENT
  Sex: Female

DRUGS (2)
  1. DIOVAN [Suspect]
     Dosage: 1 TABLET (160 MG)/DAY
     Route: 048
     Dates: start: 20060101
  2. DIOVAN [Suspect]
     Dosage: 1 TABLET (80 MG)/DAY
     Route: 048
     Dates: start: 20090301

REACTIONS (2)
  - DIZZINESS [None]
  - LYMPHOMA [None]
